FAERS Safety Report 15278438 (Version 6)
Quarter: 2019Q4

REPORT INFORMATION
  Report Type: Spontaneous
  Country: US (occurrence: US)
  Receive Date: 20180814
  Receipt Date: 20191217
  Transmission Date: 20200122
  Serious: Yes (Hospitalization, Other)
  Sender: FDA-Public Use
  Company Number: US-009507513-1808USA003574

PATIENT
  Sex: Female

DRUGS (4)
  1. REMERON [Suspect]
     Active Substance: MIRTAZAPINE
     Dosage: UNK
     Route: 048
     Dates: start: 20180510
  2. REMERON [Suspect]
     Active Substance: MIRTAZAPINE
     Indication: SLEEP DISORDER THERAPY
     Dosage: 10 MG, QD
     Route: 048
     Dates: start: 20180403, end: 2018
  3. REMERON [Suspect]
     Active Substance: MIRTAZAPINE
     Dosage: 30 MG, QD
     Route: 048
     Dates: start: 2018, end: 2018
  4. REMERON [Suspect]
     Active Substance: MIRTAZAPINE
     Dosage: 60 MG, QD
     Route: 048
     Dates: start: 2018, end: 20180514

REACTIONS (62)
  - Renal failure [Recovering/Resolving]
  - Coma [Recovered/Resolved]
  - Unresponsive to stimuli [Unknown]
  - Cerebrovascular accident [Unknown]
  - Cerebral disorder [Unknown]
  - Contusion [Unknown]
  - Limb injury [Unknown]
  - Aggression [Recovering/Resolving]
  - Acute respiratory failure [Unknown]
  - Hallucination [Unknown]
  - Tooth fracture [Unknown]
  - Conversion disorder [Unknown]
  - Hypoaesthesia [Unknown]
  - Headache [Unknown]
  - Hepatic failure [Recovering/Resolving]
  - Rhabdomyolysis [Recovered/Resolved]
  - Encephalopathy [Unknown]
  - Nasal injury [Unknown]
  - Skin laceration [Unknown]
  - Gait inability [Unknown]
  - Dysphagia [Unknown]
  - Muscle spasms [Unknown]
  - Aphasia [Unknown]
  - Blood pressure increased [Unknown]
  - Loss of consciousness [Recovered/Resolved]
  - Oedema peripheral [Unknown]
  - Pneumonia aspiration [Unknown]
  - Suicidal ideation [Unknown]
  - Lordosis [Unknown]
  - Metabolic acidosis [Recovered/Resolved]
  - Lung hypoinflation [Unknown]
  - Tooth loss [Unknown]
  - Epistaxis [Unknown]
  - Weight decreased [Unknown]
  - Vomiting [Unknown]
  - Multiple organ dysfunction syndrome [Unknown]
  - Toxic encephalopathy [Unknown]
  - Nerve injury [Not Recovered/Not Resolved]
  - Disorientation [Unknown]
  - Fall [Unknown]
  - Radiculopathy [Unknown]
  - Fall [Unknown]
  - Drug withdrawal syndrome [Recovering/Resolving]
  - Amnesia [Recovering/Resolving]
  - Urinary incontinence [Unknown]
  - Insomnia [Recovering/Resolving]
  - Confusional state [Unknown]
  - Cardiac failure [Recovering/Resolving]
  - Seizure [Unknown]
  - Conversion disorder [Unknown]
  - Dyspnoea [Unknown]
  - Mental status changes [Recovering/Resolving]
  - Respiration abnormal [Recovering/Resolving]
  - Eyelid abrasion [Unknown]
  - Nerve compression [Unknown]
  - Renal disorder [Not Recovered/Not Resolved]
  - Loss of consciousness [Recovered/Resolved]
  - Hypokalaemia [Unknown]
  - Phaeochromocytoma [Unknown]
  - Sensory loss [Not Recovered/Not Resolved]
  - Chronic sinusitis [Unknown]
  - Overdose [Unknown]

NARRATIVE: CASE EVENT DATE: 2018
